FAERS Safety Report 9094865 (Version 1)
Quarter: 2013Q1

REPORT INFORMATION
  Report Type: Spontaneous
  Country: US (occurrence: None)
  Receive Date: 20130214
  Receipt Date: 20130214
  Transmission Date: 20140127
  Serious: No
  Sender: FDA-Public Use
  Company Number: None

PATIENT
  Age: 61 Year
  Sex: 0

DRUGS (6)
  1. FORTEO [Suspect]
     Indication: OSTEOPOROSIS
     Dosage: 20MCG  DAILY  SQ
     Route: 058
     Dates: start: 20121118, end: 20130213
  2. BACLAFEN [Concomitant]
  3. LASIX [Concomitant]
  4. MAXZIDE [Concomitant]
  5. PERCOCET [Concomitant]
  6. SYNTHROID [Concomitant]

REACTIONS (1)
  - Bone pain [None]
